FAERS Safety Report 24250830 (Version 1)
Quarter: 2024Q3

REPORT INFORMATION
  Report Type: Spontaneous
  Country: US (occurrence: US)
  Receive Date: 20240826
  Receipt Date: 20240826
  Transmission Date: 20241017
  Serious: No
  Sender: BRACCO
  Company Number: US-BRACCO-2024US00707

PATIENT
  Age: 61 Year
  Sex: Female

DRUGS (1)
  1. SINCALIDE [Suspect]
     Active Substance: SINCALIDE
     Indication: Hepatobiliary scan
     Dosage: 1.6 ?G, SINGLE DOSE ONLY
     Route: 042
     Dates: start: 20240117, end: 20240117

REACTIONS (2)
  - Drug ineffective [Unknown]
  - No adverse event [Unknown]

NARRATIVE: CASE EVENT DATE: 20240117
